FAERS Safety Report 14905503 (Version 1)
Quarter: 2018Q2

REPORT INFORMATION
  Report Type: Spontaneous
  Country: FR (occurrence: FR)
  Receive Date: 20180517
  Receipt Date: 20180517
  Transmission Date: 20180711
  Serious: Yes (Other)
  Sender: FDA-Public Use
  Company Number: FR-MERCK KGAA-2047962

PATIENT
  Age: 73 Year
  Sex: Female

DRUGS (1)
  1. NOVOTHYROX [Suspect]
     Active Substance: LEVOTHYROXINE SODIUM
     Indication: PRODUCT USED FOR UNKNOWN INDICATION

REACTIONS (22)
  - Aggression [None]
  - Oedema peripheral [None]
  - Weight increased [None]
  - Pain in extremity [None]
  - Fatigue [None]
  - Irritability [None]
  - Headache [None]
  - Disorientation [None]
  - Alopecia [None]
  - Blood thyroid stimulating hormone increased [None]
  - Somnolence [None]
  - Abdominal pain [None]
  - Asthenia [None]
  - Constipation [None]
  - Loss of consciousness [None]
  - Heart rate irregular [None]
  - Tri-iodothyronine free decreased [None]
  - Balance disorder [None]
  - Syncope [None]
  - Blood pressure inadequately controlled [None]
  - Depression [None]
  - Thyroxine free decreased [None]

NARRATIVE: CASE EVENT DATE: 20170930
